FAERS Safety Report 24154961 (Version 1)
Quarter: 2024Q3

REPORT INFORMATION
  Report Type: Spontaneous
  Country: TR (occurrence: TR)
  Receive Date: 20240731
  Receipt Date: 20240731
  Transmission Date: 20241017
  Serious: Yes (Hospitalization, Other)
  Sender: NOVITIUM PHARMA
  Company Number: TR-NOVITIUMPHARMA-2024TRNVP01425

PATIENT
  Age: 81 Year
  Sex: Male

DRUGS (1)
  1. SILDENAFIL CITRATE [Suspect]
     Active Substance: SILDENAFIL CITRATE
     Indication: Erectile dysfunction

REACTIONS (2)
  - Pulmonary embolism [Recovered/Resolved]
  - Accidental exposure to product [Unknown]
